FAERS Safety Report 9736659 (Version 1)
Quarter: 2013Q4

REPORT INFORMATION
  Report Type: Spontaneous
  Country: US (occurrence: US)
  Receive Date: 20131206
  Receipt Date: 20131206
  Transmission Date: 20140711
  Serious: No
  Sender: FDA-Public Use
  Company Number: US-GILEAD-2009-0022856

PATIENT
  Sex: Female

DRUGS (15)
  1. LETAIRIS [Suspect]
     Indication: PULMONARY ARTERIAL HYPERTENSION
     Route: 048
     Dates: start: 20090407
  2. CLONIDINE [Concomitant]
  3. XOPENEX [Concomitant]
  4. SYMBICORT [Concomitant]
  5. ATROVENT [Concomitant]
  6. GLUCAGON [Concomitant]
  7. NOVOLIN R [Concomitant]
  8. PROTONIX [Concomitant]
  9. TYLENOL [Concomitant]
  10. LORAZEPAM [Concomitant]
  11. DICYCLOMINE [Concomitant]
  12. PREDNISONE [Concomitant]
  13. VICODIN [Concomitant]
  14. NYSTATIN [Concomitant]
  15. LACTINEX GRANULES PACKET [Concomitant]

REACTIONS (2)
  - Fatigue [Unknown]
  - Dyspnoea [Unknown]
